FAERS Safety Report 13612852 (Version 1)
Quarter: 2017Q2

REPORT INFORMATION
  Report Type: Spontaneous
  Country: US (occurrence: US)
  Receive Date: 20170605
  Receipt Date: 20170605
  Transmission Date: 20170830
  Serious: Yes (Hospitalization)
  Sender: FDA-Public Use
  Company Number: US-APOTEX-2017AP012746

PATIENT
  Age: 27 Year
  Sex: Male

DRUGS (15)
  1. GABAPENTIN. [Suspect]
     Active Substance: GABAPENTIN
     Dosage: 500 MG, 4 TIMES A DAY
     Route: 050
  2. CLONIDINE. [Suspect]
     Active Substance: CLONIDINE
     Indication: INTENTIONAL SELF-INJURY
     Dosage: 0.1 MG, TID
     Route: 050
  3. OXYCODONE [Concomitant]
     Active Substance: OXYCODONE
     Indication: ANALGESIC THERAPY
     Dosage: 27 MG, 1 DAY
     Route: 050
  4. OLANZAPINE. [Suspect]
     Active Substance: OLANZAPINE
     Indication: INTENTIONAL SELF-INJURY
     Dosage: 40 MG, QD
     Route: 050
  5. HALOPERIDOL. [Concomitant]
     Active Substance: HALOPERIDOL
     Indication: INTENTIONAL SELF-INJURY
     Dosage: 30 MG, QD
     Route: 042
  6. VALPROIC ACID [D] [Suspect]
     Active Substance: VALPROIC ACID
     Indication: INTENTIONAL SELF-INJURY
     Dosage: 250MG/5ML
     Route: 050
  7. CHLORPROMAZINE. [Concomitant]
     Active Substance: CHLORPROMAZINE
     Indication: INTENTIONAL SELF-INJURY
     Dosage: 350 MG, QD
     Route: 042
  8. NALOXONE [Concomitant]
     Active Substance: NALOXONE
     Dosage: 1.4 MG, 1 DAY
     Route: 050
  9. HALOPERIDOL. [Concomitant]
     Active Substance: HALOPERIDOL
     Indication: AGITATION
  10. LORAZEPAM. [Concomitant]
     Active Substance: LORAZEPAM
     Indication: AGITATION
     Dosage: 4 MG, UNK, EVERY 4 HOURS AS NEEDED
     Route: 042
  11. LORAZEPAM. [Concomitant]
     Active Substance: LORAZEPAM
     Dosage: UNK, (2 MG/ML) 1 ML
     Route: 050
  12. GABAPENTIN. [Suspect]
     Active Substance: GABAPENTIN
     Indication: INTENTIONAL SELF-INJURY
     Dosage: 800 MG, TID
     Route: 050
  13. BUSPIPRONE HYDROCHLORIDE TABLETS USP [Suspect]
     Active Substance: BUSPIRONE HYDROCHLORIDE
     Indication: INTENTIONAL SELF-INJURY
     Dosage: 20 MG, QID
     Route: 050
  14. NALOXONE [Concomitant]
     Active Substance: NALOXONE
     Indication: ANALGESIC THERAPY
     Dosage: 1 MG, 1 DAY
     Route: 050
  15. NALOXONE [Concomitant]
     Active Substance: NALOXONE
     Dosage: 2.3 MG, 1 DAY
     Route: 050

REACTIONS (5)
  - Drug ineffective [Unknown]
  - Hypotension [Unknown]
  - Hyperammonaemia [Unknown]
  - Transaminases increased [Unknown]
  - Sedation [Unknown]
